FAERS Safety Report 8912389 (Version 2)
Quarter: 2012Q4

REPORT INFORMATION
  Report Type: Spontaneous
  Country: US (occurrence: None)
  Receive Date: 20121113
  Receipt Date: 20121120
  Transmission Date: 20130627
  Serious: Yes (Death, Hospitalization, Other)
  Sender: FDA-Public Use
  Company Number: 2012AP003775

PATIENT
  Age: 17 Year
  Sex: Female

DRUGS (15)
  1. MYCOPHENOLATE MOFETIL [Suspect]
     Indication: IMMUNOSUPPRESSANT DRUG THERAPY
  2. TACROLIMUS [Suspect]
  3. TACROLIMUS [Suspect]
  4. PREDNISONE [Suspect]
  5. PREDNISONE [Suspect]
  6. PREDNISONE [Suspect]
  7. PREDNISONE [Suspect]
  8. METHYLPREDNISOLONE [Suspect]
  9. RIFABUTIN [Concomitant]
  10. CLARITHROMYCIN [Concomitant]
  11. ETHAMBUTOL [Concomitant]
  12. MOXIFLOXACIN [Concomitant]
  13. AZITHROMYCIN [Concomitant]
  14. AMIKACIN [Concomitant]
  15. INTERFERON GAMMA [Concomitant]

REACTIONS (9)
  - Mycobacterium avium complex infection [None]
  - Transplant rejection [None]
  - Rhinorrhoea [None]
  - Oropharyngeal pain [None]
  - Sepsis [None]
  - Dysphagia [None]
  - Splenomegaly [None]
  - Abnormal loss of weight [None]
  - Nodule [None]
